FAERS Safety Report 5004092-0 (Version None)
Quarter: 2006Q2

REPORT INFORMATION
  Report Type: 
  Country: None (occurrence: None)
  Receive Date: 20060511
  Receipt Date: 20060503
  Transmission Date: 20061013
  Serious: Yes (Other)
  Sender: FDA-Public Use
  Company Number: 2006059994

PATIENT
  Age: 17 Year
  Sex: Female
  Weight: 54.4316 kg

DRUGS (2)
  1. ZYRTEC [Suspect]
     Indication: HYPERSENSITIVITY
     Dosage: 10 MG (10 MG, 1 IN 1 D), ORAL
     Route: 048
  2. FLONASE [Concomitant]

REACTIONS (6)
  - COELIAC DISEASE [None]
  - GASTROINTESTINAL DISORDER [None]
  - LACTOSE INTOLERANCE [None]
  - LETHARGY [None]
  - OESOPHAGITIS [None]
  - ULCER [None]
